FAERS Safety Report 8762923 (Version 3)
Quarter: 2013Q3

REPORT INFORMATION
  Report Type: Spontaneous
  Country: None (occurrence: None)
  Receive Date: 20120823
  Receipt Date: 20130807
  Transmission Date: 20140515
  Serious: Yes (Hospitalization)
  Sender: FDA-Public Use
  Company Number: AUR-APL-2012-03525

PATIENT
  Age: 60 Year
  Sex: Male

DRUGS (7)
  1. RAMIPRIL [Suspect]
     Indication: PRODUCT USED FOR UNKNOWN INDICATION
     Route: 048
  2. METFORMIN [Suspect]
     Indication: TYPE 2 DIABETES MELLITUS
     Dates: start: 20111115
  3. SAXAGLIPTIN [Suspect]
     Indication: TYPE 2 DIABETES MELLITUS
     Dates: start: 20110427
  4. INSULIN ASPART [Suspect]
     Indication: TYPE 2 DIABETES MELLITUS
  5. ROSUVASTATIN [Suspect]
     Indication: PRODUCT USED FOR UNKNOWN INDICATION
     Route: 048
  6. ACETYLSALICYLIC ACID (ACETYLSALICYLIC ACID) [Concomitant]
  7. ACNE STATIN (ACNE STATIN) [Concomitant]

REACTIONS (2)
  - Pancreatitis [None]
  - Hepatic steatosis [None]
